FAERS Safety Report 23088203 (Version 2)
Quarter: 2024Q1

REPORT INFORMATION
  Report Type: Spontaneous
  Country: ES (occurrence: ES)
  Receive Date: 20231020
  Receipt Date: 20240122
  Transmission Date: 20240410
  Serious: Yes (Other)
  Sender: FDA-Public Use
  Company Number: ES-BRISTOL-MYERS SQUIBB COMPANY-2023-142657

PATIENT
  Age: 78 Year
  Sex: Male

DRUGS (3)
  1. OXALIPLATIN [Suspect]
     Active Substance: OXALIPLATIN
     Indication: Oesophageal adenocarcinoma
     Dosage: 130 MILLIGRAM/SQ. METER
     Route: 065
     Dates: start: 202112
  2. CAPECITABINE [Suspect]
     Active Substance: CAPECITABINE
     Indication: Oesophageal adenocarcinoma
     Dosage: 1000 MILLIGRAM/SQ. METER, TWO TIMES A DAY
     Route: 065
     Dates: start: 202112
  3. NIVOLUMAB [Suspect]
     Active Substance: NIVOLUMAB
     Indication: Oesophageal adenocarcinoma
     Dosage: 360 MILLIGRAM/KILOGRAM, (3 WEEKS)
     Route: 065
     Dates: start: 202112

REACTIONS (3)
  - Peripheral sensory neuropathy [Unknown]
  - Hypothyroidism [Unknown]
  - Testicular disorder [Unknown]
